FAERS Safety Report 4462389-7 (Version None)
Quarter: 2004Q3

REPORT INFORMATION
  Report Type: 
  Country: None (occurrence: None)
  Receive Date: 20040923
  Receipt Date: 20040910
  Transmission Date: 20050211
  Serious: Yes (Other)
  Sender: FDA-Public Use
  Company Number: WAES 98091778

PATIENT
  Age: 21 Year
  Sex: Male

DRUGS (10)
  1. CRIXIVAN [Suspect]
     Indication: HIV INFECTION
     Dosage: SEE IMAGE
     Route: 048
     Dates: start: 19960729, end: 19961013
  2. CRIXIVAN [Suspect]
     Indication: HIV INFECTION
     Dosage: SEE IMAGE
     Route: 048
     Dates: start: 19961014, end: 19980920
  3. VIDEX [Suspect]
     Dosage: 100 MG/BID PO; 300 MG PO
     Route: 048
     Dates: start: 19960826, end: 19991213
  4. VIDEX [Suspect]
     Dosage: 100 MG/BID PO; 300 MG PO
     Route: 048
     Dates: start: 19991214, end: 20010404
  5. KOGENATE [Concomitant]
  6. RETROVIR [Concomitant]
  7. VIDEX [Concomitant]
  8. VIRACEPT [Concomitant]
  9. ACYCLOVIR [Concomitant]
  10. PENTAMIDINE ISETIONATE [Concomitant]

REACTIONS (27)
  - ACTIVATED PARTIAL THROMBOPLASTIN TIME PROLONGED [None]
  - ANAEMIA [None]
  - BLOOD ALBUMIN INCREASED [None]
  - BLOOD ALKALINE PHOSPHATASE INCREASED [None]
  - BLOOD FIBRINOGEN INCREASED [None]
  - BLOOD GLUCOSE INCREASED [None]
  - BLOOD LACTATE DEHYDROGENASE INCREASED [None]
  - C-REACTIVE PROTEIN INCREASED [None]
  - CREATINE PHOSPHOKINASE DECREASED [None]
  - EOSINOPHIL COUNT INCREASED [None]
  - GENERALISED OEDEMA [None]
  - HAEMATURIA [None]
  - HYPERBILIRUBINAEMIA [None]
  - MONOCYTE COUNT DECREASED [None]
  - NEPHROSCLEROSIS [None]
  - NEUTROPHIL PERCENTAGE DECREASED [None]
  - PLATELET COUNT ABNORMAL [None]
  - PROTEIN TOTAL INCREASED [None]
  - PROTEIN URINE PRESENT [None]
  - PYURIA [None]
  - RENAL ATROPHY [None]
  - RENAL FAILURE [None]
  - RENAL HYPERTENSION [None]
  - ULTRASOUND SCAN ABNORMAL [None]
  - URINARY SEDIMENT ABNORMAL [None]
  - UROGRAPHY ABNORMAL [None]
  - WHITE BLOOD CELL COUNT DECREASED [None]
